FAERS Safety Report 4493582-5 (Version None)
Quarter: 2004Q4

REPORT INFORMATION
  Report Type: 
  Country: None (occurrence: None)
  Receive Date: 20041105
  Receipt Date: 20040721
  Transmission Date: 20050328
  Serious: No
  Sender: FDA-Public Use
  Company Number: US-BRISTOL-MYERS SQUIBB COMPANY-12648523

PATIENT
  Age: 54 Year
  Sex: Male
  Weight: 66 kg

DRUGS (7)
  1. MEGACE [Suspect]
     Indication: DECREASED APPETITE
     Route: 048
  2. MULTI-VITAMINS [Concomitant]
  3. ASPIRIN [Concomitant]
  4. BEE POLLEN [Concomitant]
  5. VITAMIN B-12 [Concomitant]
  6. VITAMIN C [Concomitant]
  7. VITAMIN E [Concomitant]

REACTIONS (3)
  - DRY MOUTH [None]
  - LIBIDO DECREASED [None]
  - POLLAKIURIA [None]
